FAERS Safety Report 5149548-5 (Version None)
Quarter: 2006Q4

REPORT INFORMATION
  Report Type: 
  Country: None (occurrence: None)
  Receive Date: 20061113
  Receipt Date: 20060412
  Transmission Date: 20070319
  Serious: No
  Sender: FDA-Public Use
  Company Number: US-GLAXOSMITHKLINE-A0601555A

PATIENT
  Age: 67 Year
  Sex: Female

DRUGS (3)
  1. COREG [Suspect]
     Dosage: 12.5MG TWICE PER DAY
     Route: 048
     Dates: start: 20030101
  2. CENTRUM SILVER [Concomitant]
  3. ASPIRIN [Concomitant]

REACTIONS (3)
  - ASTHENOPIA [None]
  - BLEPHARITIS [None]
  - DRY EYE [None]
